FAERS Safety Report 9571162 (Version 1)
Quarter: 2013Q3

REPORT INFORMATION
  Report Type: Spontaneous
  Country: US (occurrence: None)
  Receive Date: 20130927
  Receipt Date: 20130927
  Transmission Date: 20140515
  Serious: No
  Sender: FDA-Public Use
  Company Number: None

PATIENT
  Age: 52 Year
  Sex: Female

DRUGS (1)
  1. TAFINLAR [Suspect]
     Indication: MALIGNANT MELANOMA
     Route: 048
     Dates: start: 20130823, end: 20130926

REACTIONS (2)
  - Myalgia [None]
  - Arthralgia [None]
